FAERS Safety Report 18708672 (Version 1)
Quarter: 2021Q1

REPORT INFORMATION
  Report Type: Spontaneous
  Country: US (occurrence: US)
  Receive Date: 20210106
  Receipt Date: 20210106
  Transmission Date: 20210419
  Serious: No
  Sender: FDA-Public Use
  Company Number: US-ASTRAZENECA-2020SF45795

PATIENT
  Age: 12090 Day
  Sex: Female
  Weight: 63 kg

DRUGS (2)
  1. PROAIR HFA [Concomitant]
     Active Substance: ALBUTEROL SULFATE
     Indication: ASTHMA
     Dosage: 2.0DF UNKNOWN
     Route: 065
     Dates: start: 20200505
  2. PULMICORT FLEXHALER [Suspect]
     Active Substance: BUDESONIDE
     Indication: ASTHMA
     Dosage: 90MCG, TWO PUFFS TWICE A DAY
     Route: 055
     Dates: start: 20201013, end: 20201020

REACTIONS (3)
  - Asthma [Recovered/Resolved]
  - Product use issue [Recovered/Resolved]
  - Device malfunction [Recovered/Resolved]

NARRATIVE: CASE EVENT DATE: 20201013
